FAERS Safety Report 9557716 (Version 1)
Quarter: 2013Q3

REPORT INFORMATION
  Report Type: Spontaneous
  Country: US (occurrence: None)
  Receive Date: 20130724
  Receipt Date: 20130724
  Transmission Date: 20140515
  Serious: No
  Sender: FDA-Public Use
  Company Number: PHEH2013US005259

PATIENT
  Sex: Female

DRUGS (1)
  1. GILENYA (FINGOLIMOD) [Suspect]
     Indication: MULTIPLE SCLEROSIS

REACTIONS (4)
  - Memory impairment [None]
  - Dyspepsia [None]
  - Chest pain [None]
  - Dyspnoea [None]
